FAERS Safety Report 16828408 (Version 8)
Quarter: 2020Q4

REPORT INFORMATION
  Report Type: Spontaneous
  Country: US (occurrence: US)
  Receive Date: 20190919
  Receipt Date: 20201223
  Transmission Date: 20210113
  Serious: Yes (Other)
  Sender: FDA-Public Use
  Company Number: US-SA-2019SA260804

PATIENT

DRUGS (2)
  1. KEVZARA [Suspect]
     Active Substance: SARILUMAB
     Indication: RHEUMATOID ARTHRITIS
     Dosage: 200 MG, QOW
     Route: 058
     Dates: start: 20190913, end: 202004
  2. KEVZARA [Suspect]
     Active Substance: SARILUMAB
     Dosage: 200 MG, QOW
     Route: 058
     Dates: start: 2020

REACTIONS (11)
  - Neuralgia [Unknown]
  - Arthralgia [Not Recovered/Not Resolved]
  - Illness [Not Recovered/Not Resolved]
  - Rheumatoid arthritis [Unknown]
  - Pain [Unknown]
  - Joint swelling [Unknown]
  - Therapeutic response decreased [Unknown]
  - Movement disorder [Not Recovered/Not Resolved]
  - Swelling [Unknown]
  - Synovial cyst [Not Recovered/Not Resolved]
  - Swelling [Not Recovered/Not Resolved]

NARRATIVE: CASE EVENT DATE: 202004
